FAERS Safety Report 9160090 (Version 2)
Quarter: 2013Q2

REPORT INFORMATION
  Report Type: Spontaneous
  Country: GB (occurrence: GB)
  Receive Date: 20130313
  Receipt Date: 20130418
  Transmission Date: 20140414
  Serious: Yes (Death)
  Sender: FDA-Public Use
  Company Number: GB-B.I. PHARMACEUTICALS,INC./RIDGEFIELD-2013-UK-00357UK

PATIENT
  Age: 57 Year
  Sex: Male
  Weight: 68 kg

DRUGS (8)
  1. PRADAXA [Suspect]
     Indication: ATRIAL FIBRILLATION
     Dosage: 2 CAPSULES EACH MORNING
     Route: 048
     Dates: start: 20120130
  2. EPILIM CHRONO [Concomitant]
     Indication: EPILEPSY
     Dosage: 1200 MG
     Route: 048
     Dates: start: 20060601
  3. DIGOXIN [Concomitant]
     Indication: ATRIAL FIBRILLATION
     Dosage: 125 MCG
     Route: 048
     Dates: start: 20051118
  4. DULOXETINE [Concomitant]
     Indication: DEPRESSION
     Dosage: 30 MG
     Route: 048
     Dates: start: 20120130
  5. BISOPROLOL [Concomitant]
     Indication: ATRIAL FIBRILLATION
     Dosage: 10 MG
     Route: 048
     Dates: start: 20071011
  6. BISOPROLOL [Concomitant]
     Indication: CARDIAC FAILURE
  7. SALBUTAMOL [Concomitant]
     Indication: ASTHMA
     Dosage: 100 MCG
     Route: 055
     Dates: start: 20070330
  8. SALBUTAMOL [Concomitant]
     Indication: CHRONIC OBSTRUCTIVE PULMONARY DISEASE

REACTIONS (2)
  - Acute left ventricular failure [Fatal]
  - Cardiac valve replacement complication [Fatal]
